FAERS Safety Report 7829456-9 (Version None)
Quarter: 2011Q4

REPORT INFORMATION
  Report Type: 
  Country: None (occurrence: None)
  Receive Date: 20111020
  Receipt Date: 20111005
  Transmission Date: 20120403
  Serious: Yes (Hospitalization)
  Sender: FDA-Public Use
  Company Number: US-ROCHE-1002399

PATIENT
  Age: 56 Year
  Sex: Male
  Weight: 79.4 kg

DRUGS (2)
  1. ACTEMRA [Suspect]
     Indication: RHEUMATOID ARTHRITIS
     Dosage: RECENT DOSE PRIOR SAE WAS ON 28/SEP/2011
     Route: 042
     Dates: start: 20110511
  2. ACTEMRA [Suspect]
     Dosage: RECENT DOSE PRIOR SAE WAS ON 28/SEP/2011
     Route: 058
     Dates: start: 20110511

REACTIONS (1)
  - DEEP VEIN THROMBOSIS [None]
